FAERS Safety Report 12331131 (Version 3)
Quarter: 2016Q2

REPORT INFORMATION
  Report Type: Spontaneous
  Country: US (occurrence: US)
  Receive Date: 20160504
  Receipt Date: 20160613
  Transmission Date: 20160815
  Serious: Yes (Hospitalization)
  Sender: FDA-Public Use
  Company Number: US-SA-2016SA085081

PATIENT
  Age: 72 Year
  Sex: Male

DRUGS (2)
  1. RIFAMPICIN [Suspect]
     Active Substance: RIFAMPIN
     Indication: ANTIBIOTIC THERAPY
     Route: 065
  2. VANCOMYCIN [Suspect]
     Active Substance: VANCOMYCIN
     Indication: ANTIBIOTIC THERAPY
     Route: 065

REACTIONS (6)
  - Device related infection [Unknown]
  - Rash [Unknown]
  - Candida infection [Unknown]
  - Pyrexia [Unknown]
  - Eosinophilia [Unknown]
  - Leukopenia [Unknown]

NARRATIVE: CASE EVENT DATE: 20140822
